FAERS Safety Report 17957440 (Version 11)
Quarter: 2020Q4

REPORT INFORMATION
  Report Type: Spontaneous
  Country: AU (occurrence: AU)
  Receive Date: 20200629
  Receipt Date: 20201116
  Transmission Date: 20210113
  Serious: Yes (Hospitalization, Other)
  Sender: FDA-Public Use
  Company Number: AU-PFIZER INC-2020246723

PATIENT
  Age: 61 Year
  Sex: Male

DRUGS (11)
  1. SOMAC [Suspect]
     Active Substance: PANTOPRAZOLE SODIUM
     Dosage: 40 MILLIGRAM
     Route: 048
  2. CARVEDILOL HYDROCHLORIDE [Suspect]
     Active Substance: CARVEDILOL HYDROCHLORIDE
     Dosage: 50 MILLIGRAM, QD (50 MILLIGRAM IN THE MORNING)
     Route: 065
     Dates: start: 20191126
  3. ISOSORBIDE MONONITRATE. [Suspect]
     Active Substance: ISOSORBIDE MONONITRATE
     Dosage: 90 MILLIGRAM
     Route: 065
  4. RANITIDINE. [Suspect]
     Active Substance: RANITIDINE
     Dosage: 150 MILLIGRAM
     Route: 065
  5. FUROSEMIDE. [Suspect]
     Active Substance: FUROSEMIDE
     Dosage: 80 MILLIGRAM, BID
     Route: 065
  6. APIXABAN [Suspect]
     Active Substance: APIXABAN
     Dosage: 2.5 MILLIGRAM
     Route: 065
  7. DIGOXIN. [Suspect]
     Active Substance: DIGOXIN
     Dosage: 62.5 MICROGRAM, BID
     Route: 065
  8. FUROSEMIDE. [Suspect]
     Active Substance: FUROSEMIDE
     Dosage: 160 MILLIGRAM, QD(160 MILLIGRAM IN THE MORNING)
     Route: 065
     Dates: start: 20191126
  9. DIGOXIN. [Suspect]
     Active Substance: DIGOXIN
     Dosage: 125 UG, 1X/DAY(125 MICROGRAM IN THE MORNING)
     Route: 065
     Dates: start: 20191126
  10. ISOSORBIDE MONONITRATE. [Suspect]
     Active Substance: ISOSORBIDE MONONITRATE
     Dosage: 180 MG, 1X/DAY(180 MILLIGRAM IN THE MORNING)
     Route: 065
     Dates: start: 20191126
  11. CARVEDILOL HYDROCHLORIDE [Suspect]
     Active Substance: CARVEDILOL HYDROCHLORIDE
     Dosage: 25 MILLIGRAM, BID
     Route: 065

REACTIONS (3)
  - Bradycardia [Unknown]
  - Nephropathy [Unknown]
  - Wrong dose [Unknown]

NARRATIVE: CASE EVENT DATE: 20191126
